FAERS Safety Report 19280514 (Version 1)
Quarter: 2021Q2

REPORT INFORMATION
  Report Type: Report from Study
  Country: MY (occurrence: MY)
  Receive Date: 20210520
  Receipt Date: 20210520
  Transmission Date: 20210717
  Serious: Yes (Death)
  Sender: FDA-Public Use
  Company Number: MY-CELGENEUS-MYS-20210400710

PATIENT
  Age: 35 Year
  Sex: Female
  Weight: 52.2 kg

DRUGS (1)
  1. LUSPATERCEPT. [Suspect]
     Active Substance: LUSPATERCEPT
     Indication: ANAEMIA OF CHRONIC DISEASE
     Dosage: .0476 MILLIGRAM
     Route: 058
     Dates: start: 20161223, end: 20170519

REACTIONS (1)
  - Pneumonia [Fatal]

NARRATIVE: CASE EVENT DATE: 20210203
